FAERS Safety Report 10676232 (Version 1)
Quarter: 2014Q4

REPORT INFORMATION
  Report Type: Spontaneous
  Country: CN (occurrence: CN)
  Receive Date: 20141226
  Receipt Date: 20141226
  Transmission Date: 20150529
  Serious: Yes (Death, Hospitalization, Other)
  Sender: FDA-Public Use
  Company Number: CN-009507513-1412CHN011210

PATIENT
  Age: 81 Year
  Sex: Female

DRUGS (2)
  1. INTERFERON ALFA-2B [Suspect]
     Active Substance: INTERFERON ALFA-2B
     Indication: RENAL CELL CARCINOMA
     Dosage: 5 MIU/M2, HAD RECEIVED A 12-WEEK COURSE PRIOR TO ADMISSION
     Route: 058
     Dates: start: 201202
  2. ALDESLEUKIN [Suspect]
     Active Substance: ALDESLEUKIN
     Indication: RENAL CELL CARCINOMA
     Dosage: 50 MIU/M2, HAD RECEIVED A 12-WEEK COURSE PRIOR TO ADMISSION
     Route: 058
     Dates: start: 2012

REACTIONS (3)
  - Respiratory failure [Fatal]
  - Drug administration error [Unknown]
  - Interstitial lung disease [Fatal]

NARRATIVE: CASE EVENT DATE: 2012
